FAERS Safety Report 4613202-6 (Version None)
Quarter: 2005Q1

REPORT INFORMATION
  Report Type: 
  Country: None (occurrence: None)
  Receive Date: 20050315
  Receipt Date: 20050308
  Transmission Date: 20050727
  Serious: Yes (Hospitalization, Other)
  Sender: FDA-Public Use
  Company Number: 2005034810

PATIENT
  Age: 78 Year
  Sex: Female

DRUGS (8)
  1. CITALOR (ATORVASTATIN) [Suspect]
     Indication: BLOOD CHOLESTEROL INCREASED
     Dosage: 10 MG (10 MG, 1 IN 1 D), ORAL
     Route: 048
     Dates: start: 19930101
  2. ALL OTHER THERAPEUTIC PRODUCTS (ALL OTHER THERAPEUTIC PRODUCTS) [Concomitant]
  3. GINKGO BILOBA (GINKGO BILOBA) [Concomitant]
  4. RALOXIFENE HCL [Concomitant]
  5. SUPRADYN (FERROUS CARBONATE, MAGNESIUM PHOSPHATE MONOBASIC, MANGANESE [Concomitant]
  6. VITAMINS (VITAMINS) [Concomitant]
  7. GINKGO BILOBA EXTRACT (GINKGO BILOBA EXTRACT) [Concomitant]
  8. GINSENG (GINSENG) [Concomitant]

REACTIONS (9)
  - CARDIAC VALVE DISEASE [None]
  - FALL [None]
  - INJURY [None]
  - PALPITATIONS [None]
  - POISONING [None]
  - SYNCOPE [None]
  - TINNITUS [None]
  - TREATMENT NONCOMPLIANCE [None]
  - VISUAL DISTURBANCE [None]
